FAERS Safety Report 4277613-3 (Version None)
Quarter: 2004Q1

REPORT INFORMATION
  Report Type: 
  Country: None (occurrence: None)
  Receive Date: 20040121
  Receipt Date: 20040114
  Transmission Date: 20041129
  Serious: Yes (Other)
  Sender: FDA-Public Use
  Company Number: 2004UW00663

PATIENT
  Sex: Female

DRUGS (2)
  1. SEROQUEL [Suspect]
     Dosage: 600 MG ONCE PO
     Route: 048
  2. SERZONE [Suspect]
     Dosage: 200 MG PO
     Route: 048

REACTIONS (7)
  - BALANCE DISORDER [None]
  - MEDICATION ERROR [None]
  - MEMORY IMPAIRMENT [None]
  - MOVEMENT DISORDER [None]
  - MUSCLE CRAMP [None]
  - SPEECH DISORDER [None]
  - TREMOR [None]
